FAERS Safety Report 5107689-2 (Version None)
Quarter: 2006Q3

REPORT INFORMATION
  Report Type: 
  Country: None (occurrence: None)
  Receive Date: 20060919
  Receipt Date: 20060620
  Transmission Date: 20061208
  Serious: Yes (Other)
  Sender: FDA-Public Use
  Company Number: US-BAYER-200612606BCC

PATIENT
  Age: 64 Year
  Sex: Female
  Weight: 82 kg

DRUGS (8)
  1. ASPIRIN [Suspect]
     Indication: PROPHYLAXIS
     Dosage: UNIT DOSE: 325 MG
     Route: 048
     Dates: start: 20051201, end: 20060620
  2. LAMICTAL [Concomitant]
  3. DILANTIN [Concomitant]
  4. EVISTA [Concomitant]
  5. CENTRUM SILVER [Concomitant]
  6. CALTRATE [Concomitant]
  7. VITAMIN D SUPPLEMENT [Concomitant]
  8. VITAMIN E SUPPLEMENT [Concomitant]

REACTIONS (1)
  - CONVULSION [None]
